FAERS Safety Report 11131274 (Version 1)
Quarter: 2015Q2

REPORT INFORMATION
  Report Type: Spontaneous
  Country: IN (occurrence: None)
  Receive Date: 20150520
  Receipt Date: 20150520
  Transmission Date: 20150821
  Serious: Yes (Life-Threatening, Hospitalization)
  Sender: FDA-Public Use
  Company Number: UCM201505-000343

PATIENT
  Age: 69 Year
  Sex: Male

DRUGS (6)
  1. SITAGLIPTIN (SITAGLIPTIN) [Concomitant]
     Active Substance: SITAGLIPTIN
  2. AMLODIPINE [Suspect]
     Active Substance: AMLODIPINE BESYLATE
     Indication: HYPERTENSION
  3. LERCANIDIPINE (LERCANIDIPINE) (LERCANIDIPINE) [Suspect]
     Active Substance: LERCANIDIPINE
     Indication: HYPERTENSION
  4. CLOPIDOGREL [Concomitant]
     Active Substance: CLOPIDOGREL BISULFATE
  5. GLIMEPIRIDE (GLIMEPIRIDE) [Concomitant]
     Active Substance: GLIMEPIRIDE
  6. ECOSPRIN (ASPIRIN) [Concomitant]

REACTIONS (7)
  - Cardiac arrest [None]
  - Shock [None]
  - Cardiogenic shock [None]
  - Respiratory alkalosis [None]
  - Bradycardia [None]
  - Intentional overdose [None]
  - Metabolic acidosis [None]
